FAERS Safety Report 4389360-8 (Version None)
Quarter: 2004Q2

REPORT INFORMATION
  Report Type: 
  Country: None (occurrence: None)
  Receive Date: 20040630
  Receipt Date: 20040617
  Transmission Date: 20050107
  Serious: Yes (Life-Threatening)
  Sender: FDA-Public Use
  Company Number: 2004209407FR

PATIENT
  Age: 70 Year
  Sex: Male

DRUGS (3)
  1. ESTRACYT (ESTRAMUSTINE PHOSPHATE) CAPSULE [Suspect]
     Indication: PROSTATE CANCER
     Dosage: 280 MG, TID/D, D4, D7 + D11, ORAL
     Route: 048
  2. DEXAPOSTAFEN COMPRIMIDOS (DEXAMETHASONE, DEXAMETHASONE) TABLET [Suspect]
     Dosage: 16 MG, ORAL
     Route: 048
  3. NEOCEL (DOCETAXEL, DOCETAXEL) SOLUTION, STERILE [Suspect]
     Indication: PROSTATE CANCER
     Dosage: 60 MG, QD/D1 + D8, IV
     Route: 042

REACTIONS (4)
  - BLOOD GASES ABNORMAL [None]
  - DYSPNOEA [None]
  - FIBRIN D DIMER INCREASED [None]
  - INTERSTITIAL LUNG DISEASE [None]
